FAERS Safety Report 6800848-X (Version None)
Quarter: 2010Q2

REPORT INFORMATION
  Report Type: 
  Country: None (occurrence: None)
  Receive Date: 20100629
  Receipt Date: 20070716
  Transmission Date: 20101027
  Serious: No
  Sender: FDA-Public Use
  Company Number: US-PFIZER INC-2007060963

PATIENT
  Age: 85 Year
  Sex: Female
  Weight: 70.31 kg

DRUGS (4)
  1. NIFEDIPINE [Suspect]
     Indication: HYPERTENSION
     Route: 048
     Dates: start: 20070501, end: 20070710
  2. NIFEDIPINE [Suspect]
     Dosage: QD
     Route: 048
     Dates: start: 20060710
  3. COLCHICINE [Concomitant]
     Dosage: QD
  4. HYDROCHLOROTHIAZIDE [Concomitant]
     Dosage: WEEKLY

REACTIONS (4)
  - BLOOD PRESSURE INADEQUATELY CONTROLLED [None]
  - INSOMNIA [None]
  - NIGHTMARE [None]
  - SUFFOCATION FEELING [None]
